FAERS Safety Report 7972078-X (Version None)
Quarter: 2011Q4

REPORT INFORMATION
  Report Type: 
  Country: None (occurrence: None)
  Receive Date: 20111212
  Receipt Date: 20111208
  Transmission Date: 20120403
  Serious: No
  Sender: FDA-Public Use
  Company Number: US-PFIZER INC-2011300302

PATIENT
  Sex: Female
  Weight: 88.435 kg

DRUGS (3)
  1. LIPITOR [Suspect]
     Indication: BLOOD CHOLESTEROL INCREASED
     Dosage: 40 MG, 1X/DAY
     Route: 048
     Dates: start: 20060101, end: 20060101
  2. VALSARTAN [Concomitant]
     Dosage: UNK
  3. LIPITOR [Suspect]
     Dosage: 20 MG, 1X/DAY
     Route: 048
     Dates: start: 20060101

REACTIONS (1)
  - BLOOD CHOLESTEROL DECREASED [None]
